FAERS Safety Report 18524057 (Version 1)
Quarter: 2020Q4

REPORT INFORMATION
  Report Type: Spontaneous
  Country: US (occurrence: US)
  Receive Date: 20201119
  Receipt Date: 20201119
  Transmission Date: 20210114
  Serious: Yes (Other)
  Sender: FDA-Public Use
  Company Number: US-PURDUE-USA-2020-0177270

PATIENT
  Age: 9 Year
  Sex: Male

DRUGS (27)
  1. OXYCODONE HCL TABLETS (RHODES 91-490) [Suspect]
     Active Substance: OXYCODONE HYDROCHLORIDE
     Indication: ROAD TRAFFIC ACCIDENT
     Dosage: UNKNOWN
     Route: 048
  2. OXYCODONE/ ACETAMINOPHEN TABLETS [Suspect]
     Active Substance: ACETAMINOPHEN\OXYCODONE HYDROCHLORIDE
     Indication: ROAD TRAFFIC ACCIDENT
     Dosage: UNKNOWN
     Route: 048
  3. MORPHINE SULFATE EXTENDED-RELEASE TABLETS (RHODES 74-769, 74-862) [Suspect]
     Active Substance: MORPHINE SULFATE
     Indication: ROAD TRAFFIC ACCIDENT
     Dosage: UNKNWON
     Route: 048
  4. OXYCODONE HCL CR TABLETS (SIMILAR TO NDA 22-272) [Suspect]
     Active Substance: OXYCODONE HYDROCHLORIDE
     Indication: ROAD TRAFFIC ACCIDENT
     Dosage: UNKNOWN
     Route: 048
  5. VICODIN [Suspect]
     Active Substance: ACETAMINOPHEN\HYDROCODONE BITARTRATE
     Indication: ROAD TRAFFIC ACCIDENT
     Dosage: UNKNOWN
     Route: 065
  6. NORCO [Suspect]
     Active Substance: ACETAMINOPHEN\HYDROCODONE BITARTRATE
     Indication: ROAD TRAFFIC ACCIDENT
  7. HYDROCODONE BITARTRATE AND ACETAMINOPHEN [Suspect]
     Active Substance: ACETAMINOPHEN\HYDROCODONE BITARTRATE
     Indication: ROAD TRAFFIC ACCIDENT
  8. MS CONTIN [Suspect]
     Active Substance: MORPHINE SULFATE
     Indication: ROAD TRAFFIC ACCIDENT
  9. BUTRANS [Suspect]
     Active Substance: BUPRENORPHINE
     Indication: ROAD TRAFFIC ACCIDENT
  10. OXYCODONE/ ACETAMINOPHEN TABLETS [Suspect]
     Active Substance: ACETAMINOPHEN\OXYCODONE HYDROCHLORIDE
     Indication: ROAD TRAFFIC ACCIDENT
  11. PERCOCET                           /00446701/ [Suspect]
     Active Substance: ACETAMINOPHEN\OXYCODONE HYDROCHLORIDE\OXYCODONE TEREPHTHALATE
     Indication: ROAD TRAFFIC ACCIDENT
  12. HYDROCODONE BITARTRATE AND ACETAMINOPHEN [Suspect]
     Active Substance: ACETAMINOPHEN\HYDROCODONE BITARTRATE
     Indication: ROAD TRAFFIC ACCIDENT
     Dosage: UNKNWON
     Route: 048
  13. OXYCONTIN [Suspect]
     Active Substance: OXYCODONE HYDROCHLORIDE
     Indication: ROAD TRAFFIC ACCIDENT
  14. BUTRANS [Suspect]
     Active Substance: BUPRENORPHINE
     Indication: ROAD TRAFFIC ACCIDENT
     Dosage: UNKNOWN
     Route: 062
  15. BUPRENORPHINE TRANSDERMAL PATCH (SIMILAR TO NDA 21-306) [Suspect]
     Active Substance: BUPRENORPHINE
     Indication: ROAD TRAFFIC ACCIDENT
  16. OXYIR [Suspect]
     Active Substance: OXYCODONE HYDROCHLORIDE
     Indication: ROAD TRAFFIC ACCIDENT
  17. OXYCODONE HCL CR TABLETS (SIMILAR TO NDA 22-272) [Suspect]
     Active Substance: OXYCODONE HYDROCHLORIDE
     Indication: ROAD TRAFFIC ACCIDENT
  18. MORPHINE SULFATE EXTENDED-RELEASE TABLETS (RHODES 74-769, 74-862) [Suspect]
     Active Substance: MORPHINE SULFATE
     Indication: ROAD TRAFFIC ACCIDENT
  19. PERCOCET                           /00446701/ [Suspect]
     Active Substance: ACETAMINOPHEN\OXYCODONE HYDROCHLORIDE\OXYCODONE TEREPHTHALATE
     Indication: ROAD TRAFFIC ACCIDENT
     Dosage: UNKNOWN
     Route: 065
  20. OXYIR [Suspect]
     Active Substance: OXYCODONE HYDROCHLORIDE
     Indication: ROAD TRAFFIC ACCIDENT
     Dosage: UNKNOWN
     Route: 065
  21. VICODIN [Suspect]
     Active Substance: ACETAMINOPHEN\HYDROCODONE BITARTRATE
     Indication: ROAD TRAFFIC ACCIDENT
  22. BUPRENORPHINE TRANSDERMAL PATCH (SIMILAR TO NDA 21-306) [Suspect]
     Active Substance: BUPRENORPHINE
     Indication: ROAD TRAFFIC ACCIDENT
     Dosage: UNKNOWN
     Route: 065
  23. OXYCONTIN [Suspect]
     Active Substance: OXYCODONE HYDROCHLORIDE
     Indication: ROAD TRAFFIC ACCIDENT
     Dosage: UNKNOWN
     Route: 048
  24. NORCO [Suspect]
     Active Substance: ACETAMINOPHEN\HYDROCODONE BITARTRATE
     Indication: ROAD TRAFFIC ACCIDENT
     Dosage: UNKNOWN
     Route: 065
  25. HEROIN [Suspect]
     Active Substance: DIAMORPHINE
     Indication: PRODUCT USED FOR UNKNOWN INDICATION
     Dosage: UNKNOWN
     Route: 065
  26. MS CONTIN [Suspect]
     Active Substance: MORPHINE SULFATE
     Indication: ROAD TRAFFIC ACCIDENT
     Dosage: UNKNOWN
     Route: 048
  27. OXYCODONE HCL TABLETS (RHODES 91-490) [Suspect]
     Active Substance: OXYCODONE HYDROCHLORIDE
     Indication: ROAD TRAFFIC ACCIDENT

REACTIONS (2)
  - Drug dependence [Unknown]
  - Overdose [Unknown]
